FAERS Safety Report 4846017-4 (Version None)
Quarter: 2005Q4

REPORT INFORMATION
  Report Type: 
  Country: None (occurrence: None)
  Receive Date: 20051205
  Receipt Date: 20051205
  Transmission Date: 20060501
  Serious: Yes (Other)
  Sender: FDA-Public Use
  Company Number: None

PATIENT
  Age: 29 Year
  Sex: Female
  Weight: 71.2147 kg

DRUGS (1)
  1. LEXAPRO [Suspect]
     Indication: ANXIETY
     Dosage: 20 MG ONCE A 'DAY PO
     Route: 048
     Dates: start: 20050304, end: 20051120

REACTIONS (4)
  - ALOPECIA [None]
  - DRUG EXPOSURE DURING PREGNANCY [None]
  - HYPOTRICHOSIS [None]
  - STRESS [None]
